FAERS Safety Report 7282716-5 (Version None)
Quarter: 2011Q1

REPORT INFORMATION
  Report Type: 
  Country: None (occurrence: None)
  Receive Date: 20110209
  Receipt Date: 20110204
  Transmission Date: 20110831
  Serious: Yes (Other)
  Sender: FDA-Public Use
  Company Number: PT-ABBOTT-11P-130-0703416-00

PATIENT
  Sex: Male
  Weight: 63 kg

DRUGS (1)
  1. HUMIRA [Suspect]
     Indication: INFLAMMATORY BOWEL DISEASE
     Route: 058
     Dates: start: 20101001

REACTIONS (2)
  - ALOPECIA [None]
  - GUTTATE PSORIASIS [None]
